FAERS Safety Report 8159271-0 (Version None)
Quarter: 2012Q1

REPORT INFORMATION
  Report Type: 
  Country: None (occurrence: None)
  Receive Date: 20120223
  Receipt Date: 20120216
  Transmission Date: 20120608
  Serious: Yes (Disabling)
  Sender: FDA-Public Use
  Company Number: GB-TEVA-322978ISR

PATIENT
  Age: 45 Year
  Sex: Female
  Weight: 80 kg

DRUGS (4)
  1. MIRTAZAPINE [Suspect]
     Dates: start: 20120112
  2. BENDROFLUMETHIAZIDE [Concomitant]
     Dates: start: 20111013
  3. MAXITRAM SR [Concomitant]
     Dates: start: 20120112
  4. HYDROXYZINE [Concomitant]
     Dates: start: 20111025

REACTIONS (2)
  - ANGIOEDEMA [None]
  - SWOLLEN TONGUE [None]
